FAERS Safety Report 6289792-7 (Version None)
Quarter: 2009Q3

REPORT INFORMATION
  Report Type: 
  Country: None (occurrence: None)
  Receive Date: 20090730
  Receipt Date: 20080729
  Transmission Date: 20100115
  Serious: No
  Sender: FDA-Public Use
  Company Number: US-BRISTOL-MYERS SQUIBB COMPANY-14281471

PATIENT
  Sex: Female

DRUGS (4)
  1. COUMADIN [Suspect]
  2. DEPAKOTE [Suspect]
  3. COGENTIN [Suspect]
  4. NAVANE [Suspect]

REACTIONS (1)
  - BIPOLAR DISORDER [None]
